FAERS Safety Report 9993260 (Version 1)
Quarter: 2014Q1

REPORT INFORMATION
  Report Type: Report from Study
  Country: US (occurrence: US)
  Receive Date: 20140310
  Receipt Date: 20140310
  Transmission Date: 20141002
  Serious: Yes (Other)
  Sender: FDA-Public Use
  Company Number: US-ABBVIE-14P-163-1207762-00

PATIENT
  Sex: Female

DRUGS (5)
  1. LUPRON DEPOT [Suspect]
     Indication: HAEMORRHAGE
     Route: 030
     Dates: start: 201312, end: 201402
  2. LUPRON DEPOT [Suspect]
     Indication: ANAEMIA
  3. LUPRON DEPOT [Suspect]
     Indication: UTERINE LEIOMYOMA
  4. IRON [Concomitant]
     Indication: PRODUCT USED FOR UNKNOWN INDICATION
  5. CALCIUM [Concomitant]
     Indication: PRODUCT USED FOR UNKNOWN INDICATION

REACTIONS (1)
  - Uterine leiomyoma [Unknown]
